FAERS Safety Report 8548496-8 (Version None)
Quarter: 2012Q3

REPORT INFORMATION
  Report Type: 
  Country: None (occurrence: None)
  Receive Date: 20120718
  Receipt Date: 20120705
  Transmission Date: 20120928
  Serious: Yes (Other)
  Sender: FDA-Public Use
  Company Number: PHHY2012BR058507

PATIENT
  Age: 83 Year
  Sex: Male

DRUGS (1)
  1. VISUDYNE [Suspect]
     Indication: RETINAL DISORDER

REACTIONS (2)
  - DRUG INEFFECTIVE [None]
  - CATARACT [None]
